FAERS Safety Report 7210833-4 (Version None)
Quarter: 2011Q1

REPORT INFORMATION
  Report Type: 
  Country: None (occurrence: None)
  Receive Date: 20110105
  Receipt Date: 20101220
  Transmission Date: 20110831
  Serious: Yes (Other)
  Sender: FDA-Public Use
  Company Number: PHFR2010GB05980

PATIENT
  Sex: Female

DRUGS (1)
  1. TEGRETOL [Suspect]
     Dosage: 400 MG / DAILY
     Route: 048

REACTIONS (4)
  - MUSCULAR WEAKNESS [None]
  - DIABETES MELLITUS [None]
  - LETHARGY [None]
  - EYE PRURITUS [None]
